FAERS Safety Report 5312216-0 (Version None)
Quarter: 2007Q2

REPORT INFORMATION
  Report Type: 
  Country: None (occurrence: None)
  Receive Date: 20070430
  Receipt Date: 20060825
  Transmission Date: 20071010
  Serious: No
  Sender: FDA-Public Use
  Company Number: 2006UW16818

PATIENT
  Sex: Male

DRUGS (3)
  1. NEXIUM [Suspect]
     Route: 048
  2. VERAPAMIL [Concomitant]
     Indication: BLOOD PRESSURE
  3. DIGOXIN [Concomitant]
     Indication: CARDIAC DISORDER

REACTIONS (1)
  - ILL-DEFINED DISORDER [None]
